FAERS Safety Report 18049342 (Version 2)
Quarter: 2020Q4

REPORT INFORMATION
  Report Type: Spontaneous
  Country: DE (occurrence: DE)
  Receive Date: 20200721
  Receipt Date: 20201224
  Transmission Date: 20210113
  Serious: Yes (Life-Threatening, Hospitalization, Other)
  Sender: FDA-Public Use
  Company Number: DE-009507513-2007DEU006511

PATIENT
  Age: 42 Year
  Sex: Female
  Weight: 62 kg

DRUGS (4)
  1. NUVARING [Suspect]
     Active Substance: ETHINYL ESTRADIOL\ETONOGESTREL
     Dosage: UNK
     Route: 067
     Dates: start: 20200630, end: 20200707
  2. FERROUS FUMARATE (+) FOLIC ACID [Concomitant]
     Indication: ANAEMIA
     Dosage: TWICE DAILY MORNING/EVENING
     Dates: start: 20200707
  3. NUVARING [Suspect]
     Active Substance: ETHINYL ESTRADIOL\ETONOGESTREL
     Indication: CONTRACEPTION
     Dosage: UNK
     Route: 067
     Dates: end: 2017
  4. NUVARING [Suspect]
     Active Substance: ETHINYL ESTRADIOL\ETONOGESTREL
     Dosage: UNK
     Route: 067
     Dates: start: 2020

REACTIONS (6)
  - Lacrimation increased [Unknown]
  - Muscle spasms [Unknown]
  - Cerebral venous sinus thrombosis [Not Recovered/Not Resolved]
  - Headache [Unknown]
  - Subclavian vein thrombosis [Recovered/Resolved]
  - Facial paralysis [Unknown]

NARRATIVE: CASE EVENT DATE: 2020
